FAERS Safety Report 20355629 (Version 1)
Quarter: 2022Q1

REPORT INFORMATION
  Report Type: Spontaneous
  Country: US (occurrence: US)
  Receive Date: 20220120
  Receipt Date: 20220120
  Transmission Date: 20220423
  Serious: No
  Sender: FDA-Public Use
  Company Number: US-TAKEDA-2022TUS002759

PATIENT
  Sex: Female
  Weight: 81.633 kg

DRUGS (17)
  1. GATTEX [Suspect]
     Active Substance: TEDUGLUTIDE\WATER
     Indication: Short-bowel syndrome
     Dosage: 0.4 MILLIGRAM
     Route: 058
     Dates: start: 2012
  2. GATTEX [Suspect]
     Active Substance: TEDUGLUTIDE\WATER
     Indication: Short-bowel syndrome
     Dosage: 0.4 MILLIGRAM
     Route: 058
     Dates: start: 2012
  3. GATTEX [Suspect]
     Active Substance: TEDUGLUTIDE\WATER
     Indication: Short-bowel syndrome
     Dosage: 0.4 MILLIGRAM
     Route: 058
     Dates: start: 2012
  4. GATTEX [Suspect]
     Active Substance: TEDUGLUTIDE\WATER
     Indication: Short-bowel syndrome
     Dosage: 0.4 MILLIGRAM
     Route: 058
     Dates: start: 2012
  5. CLONIDINE [Concomitant]
     Active Substance: CLONIDINE
  6. STELARA [Concomitant]
     Active Substance: USTEKINUMAB
     Indication: Crohn^s disease
  7. LOMOTIL [Concomitant]
     Active Substance: ATROPINE SULFATE\DIPHENOXYLATE HYDROCHLORIDE
  8. COLESEVELAM [Concomitant]
     Active Substance: COLESEVELAM
     Indication: Blood cholesterol
  9. CREON [Concomitant]
     Active Substance: PANCRELIPASE AMYLASE\PANCRELIPASE LIPASE\PANCRELIPASE PROTEASE
  10. VENLAFAXINE [Concomitant]
     Active Substance: VENLAFAXINE HYDROCHLORIDE
  11. OXYCODONE [Concomitant]
     Active Substance: OXYCODONE
     Indication: Pain
  12. BUPROPION [Concomitant]
     Active Substance: BUPROPION
  13. BUSPIRONE [Concomitant]
     Active Substance: BUSPIRONE HYDROCHLORIDE
  14. TRAZODONE [Concomitant]
     Active Substance: TRAZODONE HYDROCHLORIDE
     Indication: Sleep disorder
  15. VITAMINS [Concomitant]
     Active Substance: VITAMINS
  16. SODIUM CHLORIDE [Concomitant]
     Active Substance: SODIUM CHLORIDE
  17. VITAMIN B12 [Concomitant]
     Active Substance: CYANOCOBALAMIN
     Indication: Product used for unknown indication
     Dosage: UNK UNK, MONTHLY
     Route: 065

REACTIONS (4)
  - Diarrhoea [Unknown]
  - Illness [Unknown]
  - Product dose omission issue [Unknown]
  - Unevaluable event [Unknown]
